FAERS Safety Report 11826444 (Version 1)
Quarter: 2015Q4

REPORT INFORMATION
  Report Type: Spontaneous
  Country: US (occurrence: None)
  Receive Date: 20151210
  Receipt Date: 20151210
  Transmission Date: 20160305
  Serious: Yes (Life-Threatening, Hospitalization)
  Sender: FDA-Public Use
  Company Number: None

PATIENT
  Age: 16 Year
  Sex: Female
  Weight: 76.2 kg

DRUGS (7)
  1. SULFUR. [Concomitant]
     Active Substance: SULFUR
  2. CLEANSER [Concomitant]
  3. ORACEA [Concomitant]
     Active Substance: DOXYCYCLINE
  4. PROAIR HFA [Concomitant]
     Active Substance: ALBUTEROL SULFATE
  5. CLINDAMYCIN [Concomitant]
     Active Substance: CLINDAMYCIN\CLINDAMYCIN PHOSPHATE
  6. SODIUM SULFACETAMIDE [Concomitant]
     Active Substance: SULFACETAMIDE SODIUM
  7. SMZ-TMP DS TAB 800-160 MG AUROBINDO [Suspect]
     Active Substance: SULFAMETHOXAZOLE\TRIMETHOPRIM
     Indication: ACNE
     Dosage: TAKEN BY MOUTH (PILLS)
     Dates: start: 20151112, end: 20151112

REACTIONS (7)
  - Sepsis [None]
  - Blood pressure decreased [None]
  - Pyrexia [None]
  - Heart rate increased [None]
  - White blood cell count decreased [None]
  - Chills [None]
  - Cough [None]

NARRATIVE: CASE EVENT DATE: 20151112
